FAERS Safety Report 10146972 (Version 1)
Quarter: 2014Q2

REPORT INFORMATION
  Report Type: Spontaneous
  Country: US (occurrence: US)
  Receive Date: 20140501
  Receipt Date: 20140501
  Transmission Date: 20141212
  Serious: Yes (Disabling, Other)
  Sender: FDA-Public Use
  Company Number: US-AMGEN INC.-USASP2014029999

PATIENT
  Age: 75 Year
  Sex: Female

DRUGS (4)
  1. PROLIA [Suspect]
     Indication: OSTEOPOROSIS POSTMENOPAUSAL
     Dosage: 60 MG, Q6MO
     Route: 065
     Dates: start: 20131106
  2. MELOXICAM [Concomitant]
  3. HYDROCODONE [Concomitant]
  4. PREDNISONE [Concomitant]

REACTIONS (4)
  - Joint dislocation [Unknown]
  - Arthralgia [Unknown]
  - Joint crepitation [Unknown]
  - Hypersensitivity [Unknown]
